FAERS Safety Report 19846445 (Version 1)
Quarter: 2021Q3

REPORT INFORMATION
  Report Type: Spontaneous
  Country: US (occurrence: US)
  Receive Date: 20210917
  Receipt Date: 20210917
  Transmission Date: 20211014
  Serious: No
  Sender: FDA-Public Use
  Company Number: US-TEVA-2021-US-1953071

PATIENT
  Age: 47 Year
  Sex: Female
  Weight: 72.57 kg

DRUGS (1)
  1. ALBUTEROL SULFATE HFA [Suspect]
     Active Substance: ALBUTEROL SULFATE
     Indication: BRONCHITIS
     Dosage: 2 PUFFS EVERY 4 HOURS
     Route: 065
     Dates: start: 20210831

REACTIONS (6)
  - Exposure to contaminated device [Unknown]
  - Body height decreased [Unknown]
  - Product use in unapproved indication [Unknown]
  - Product contamination [Unknown]
  - Weight decreased [Unknown]
  - Device delivery system issue [Unknown]
